FAERS Safety Report 8962630 (Version 3)
Quarter: 2013Q1

REPORT INFORMATION
  Report Type: Spontaneous
  Country: US (occurrence: US)
  Receive Date: 20121214
  Receipt Date: 20130116
  Transmission Date: 20140127
  Serious: Yes (Hospitalization, Other)
  Sender: FDA-Public Use
  Company Number: PHEH2012US024316

PATIENT
  Sex: Female
  Weight: 103 kg

DRUGS (3)
  1. GLEEVEC [Suspect]
  2. AFINITOR [Suspect]
  3. IMMUNE GLOBULIN [Concomitant]

REACTIONS (4)
  - Fall [Unknown]
  - Small intestinal obstruction [Unknown]
  - Arthralgia [Unknown]
  - Disease progression [Unknown]
